FAERS Safety Report 9475674 (Version 1)
Quarter: 2013Q3

REPORT INFORMATION
  Report Type: Report from Study
  Country: MX (occurrence: MX)
  Receive Date: 20130826
  Receipt Date: 20130826
  Transmission Date: 20140515
  Serious: Yes (Other)
  Sender: FDA-Public Use
  Company Number: PHHY2013MX091860

PATIENT
  Age: 86 Year
  Sex: Male

DRUGS (1)
  1. DIOVAN [Suspect]
     Indication: HYPERTENSION
     Dosage: 1 DF (160MG), DAILY
     Route: 048
     Dates: end: 201304

REACTIONS (7)
  - Prostate cancer [Unknown]
  - Prostatic specific antigen increased [Not Recovered/Not Resolved]
  - Prostatic disorder [Unknown]
  - Venous occlusion [Unknown]
  - Varicose ulceration [Recovered/Resolved]
  - Depressed mood [Not Recovered/Not Resolved]
  - General physical health deterioration [Unknown]
